FAERS Safety Report 16776588 (Version 1)
Quarter: 2019Q3

REPORT INFORMATION
  Report Type: Spontaneous
  Country: US (occurrence: US)
  Receive Date: 20190905
  Receipt Date: 20190905
  Transmission Date: 20191005
  Serious: No
  Sender: FDA-Public Use
  Company Number: US-TEVA-2019-US-1102942

PATIENT
  Sex: Male
  Weight: 91 kg

DRUGS (2)
  1. PROAIR HFA [Suspect]
     Active Substance: ALBUTEROL SULFATE
     Indication: ASTHMA
     Dosage: TWO PUFFS EVERY SIX HOURS AS NEEDED
     Route: 055
  2. PROAIR HFA [Suspect]
     Active Substance: ALBUTEROL SULFATE
     Indication: WHEEZING
     Dosage: 90MCG,EVERY 6 HOURS AS NEEDED
     Route: 055

REACTIONS (2)
  - Adverse event [Unknown]
  - Product use in unapproved indication [Unknown]
